FAERS Safety Report 6275540-3 (Version None)
Quarter: 2009Q3

REPORT INFORMATION
  Report Type: 
  Country: None (occurrence: None)
  Receive Date: 20090721
  Receipt Date: 20080409
  Transmission Date: 20100115
  Serious: Yes (Hospitalization)
  Sender: FDA-Public Use
  Company Number: GB-PFIZER INC-2008031980

PATIENT
  Age: 56 Year
  Sex: Female

DRUGS (1)
  1. PHENYTOIN SODIUM CAP [Suspect]
     Dosage: AT NIGHT
     Route: 048

REACTIONS (2)
  - CONVULSION [None]
  - DRUG TOXICITY [None]
